FAERS Safety Report 17094733 (Version 3)
Quarter: 2019Q4

REPORT INFORMATION
  Report Type: Report from Study
  Country: US (occurrence: US)
  Receive Date: 20191130
  Receipt Date: 20191212
  Transmission Date: 20200122
  Serious: Yes (Other)
  Sender: FDA-Public Use
  Company Number: NVSC2019US053434

PATIENT
  Age: 68 Year
  Sex: Male

DRUGS (2)
  1. ENTRESTO [Suspect]
     Active Substance: SACUBITRIL\VALSARTAN
     Dosage: 0.5 DF, BID (100 MG (49MG SACUBITRIL/ 51MG VALSARTAN))
     Route: 048
  2. ENTRESTO [Suspect]
     Active Substance: SACUBITRIL\VALSARTAN
     Indication: PRODUCT USED FOR UNKNOWN INDICATION
     Dosage: 100 MG (49MG SACUBITRIL/ 51MG VALSARTAN), BID
     Route: 048

REACTIONS (5)
  - Dyspnoea [Unknown]
  - Nephrolithiasis [Unknown]
  - Cough [Unknown]
  - Wrong technique in product usage process [Unknown]
  - Product prescribing error [Unknown]

NARRATIVE: CASE EVENT DATE: 20191119
